FAERS Safety Report 7389062-X (Version None)
Quarter: 2011Q2

REPORT INFORMATION
  Report Type: 
  Country: None (occurrence: None)
  Receive Date: 20110401
  Receipt Date: 20110311
  Transmission Date: 20111010
  Serious: Yes (Hospitalization)
  Sender: FDA-Public Use
  Company Number: US-ASTRAZENECA-2011SE14095

PATIENT
  Age: 75 Year
  Sex: Male

DRUGS (5)
  1. ASPIRIN [Concomitant]
  2. CRESTOR [Suspect]
     Route: 048
  3. CRESTOR [Suspect]
     Route: 048
  4. NIACIN [Concomitant]
  5. PLAVIX [Concomitant]

REACTIONS (4)
  - ECHOCARDIOGRAM [None]
  - ATHERECTOMY [None]
  - STENT PLACEMENT [None]
  - INFLUENZA [None]
